FAERS Safety Report 21701157 (Version 1)
Quarter: 2022Q4

REPORT INFORMATION
  Report Type: Spontaneous
  Country: US (occurrence: None)
  Receive Date: 20221207
  Receipt Date: 20221207
  Transmission Date: 20230113
  Serious: No
  Sender: FDA-Public Use
  Company Number: None

PATIENT
  Sex: Male
  Weight: 89.81 kg

DRUGS (24)
  1. ABIRATERONE ACETATE [Suspect]
     Active Substance: ABIRATERONE ACETATE
     Indication: Prostate cancer
     Dosage: FREQUENCY : DAILY;?
     Route: 048
     Dates: start: 20221017
  2. ASPIRIN [Concomitant]
     Active Substance: ASPIRIN
  3. CLONIDINE [Concomitant]
     Active Substance: CLONIDINE
  4. CRESTOR [Concomitant]
     Active Substance: ROSUVASTATIN CALCIUM
  5. DICLOFENAC [Concomitant]
     Active Substance: DICLOFENAC
  6. DONEPEZIL [Concomitant]
     Active Substance: DONEPEZIL
  7. EZFE 200 [Concomitant]
  8. ELIGARD [Concomitant]
     Active Substance: LEUPROLIDE ACETATE
  9. FUROSEMIDE [Concomitant]
     Active Substance: FUROSEMIDE
  10. GABAPENTIN [Concomitant]
     Active Substance: GABAPENTIN
  11. LABETALOL [Concomitant]
     Active Substance: LABETALOL\LABETALOL HYDROCHLORIDE
  12. LISINOPRIL [Concomitant]
     Active Substance: LISINOPRIL
  13. MAGNESIUM OXIDE [Concomitant]
     Active Substance: MAGNESIUM OXIDE
  14. MONTELUKAST [Concomitant]
     Active Substance: MONTELUKAST SODIUM
  15. VITAMINS [Concomitant]
     Active Substance: VITAMINS
  16. OMEPRAZOLE [Concomitant]
     Active Substance: OMEPRAZOLE
  17. ORGOVYX [Concomitant]
     Active Substance: RELUGOLIX
  18. POTASSIUM CITRATE [Concomitant]
     Active Substance: POTASSIUM CITRATE
  19. PREDNISONE [Concomitant]
     Active Substance: PREDNISONE
  20. ROPINIROLE [Concomitant]
     Active Substance: ROPINIROLE
  21. TAMSULOSIN [Concomitant]
     Active Substance: TAMSULOSIN
  22. TRIAMCINOLONE [Concomitant]
     Active Substance: TRIAMCINOLONE
  23. VITAMIN D3 [Concomitant]
     Active Substance: CHOLECALCIFEROL
  24. XGEVA [Concomitant]
     Active Substance: DENOSUMAB

REACTIONS (1)
  - Hospice care [None]
